FAERS Safety Report 8277086-X (Version None)
Quarter: 2012Q2

REPORT INFORMATION
  Report Type: 
  Country: None (occurrence: None)
  Receive Date: 20120412
  Receipt Date: 20120409
  Transmission Date: 20120825
  Serious: Yes (Other)
  Sender: FDA-Public Use
  Company Number: PHEH2011US009915

PATIENT
  Sex: Female

DRUGS (1)
  1. GILENYA [Suspect]
     Indication: MULTIPLE SCLEROSIS
     Dosage: 0.5 MG, DAILY
     Route: 048
     Dates: start: 20101115

REACTIONS (6)
  - EPISTAXIS [None]
  - MOBILITY DECREASED [None]
  - SOMNOLENCE [None]
  - HAEMOPTYSIS [None]
  - WHITE BLOOD CELL COUNT DECREASED [None]
  - GAIT DISTURBANCE [None]
